FAERS Safety Report 5076313-X (Version None)
Quarter: 2006Q3

REPORT INFORMATION
  Report Type: 
  Country: None (occurrence: None)
  Receive Date: 20060804
  Receipt Date: 20060727
  Transmission Date: 20061208
  Serious: Yes (Other)
  Sender: FDA-Public Use
  Company Number: 2005143268

PATIENT
  Age: 28 Year
  Sex: Female

DRUGS (4)
  1. MEDROXYPROGESTERONE ACETATE [Suspect]
     Indication: CONTRACEPTION
     Dosage: FIRST INJECTION, INTRAMUSCULAR; SEE IMAGE
     Route: 030
     Dates: start: 20040901, end: 20040901
  2. MEDROXYPROGESTERONE ACETATE [Suspect]
     Indication: CONTRACEPTION
     Dosage: FIRST INJECTION, INTRAMUSCULAR; SEE IMAGE
     Route: 030
     Dates: start: 20050311, end: 20050311
  3. MEDROXYPROGESTERONE ACETATE [Suspect]
     Indication: CONTRACEPTION
     Dosage: FIRST INJECTION, INTRAMUSCULAR; SEE IMAGE
     Route: 030
     Dates: start: 20050610, end: 20050610
  4. MEDROXYPROGESTERONE ACETATE [Suspect]
     Indication: CONTRACEPTION
     Dosage: FIRST INJECTION, INTRAMUSCULAR; SEE IMAGE
     Route: 030
     Dates: start: 20050908, end: 20050908

REACTIONS (3)
  - ABORTION MISSED [None]
  - DRUG EXPOSURE DURING PREGNANCY [None]
  - PREGNANCY WITH INJECTABLE CONTRACEPTIVE [None]
